FAERS Safety Report 24129764 (Version 2)
Quarter: 2024Q4

REPORT INFORMATION
  Report Type: Spontaneous
  Country: US (occurrence: US)
  Receive Date: 20240724
  Receipt Date: 20241028
  Transmission Date: 20250114
  Serious: Yes (Other)
  Sender: NOVO NORDISK
  Company Number: US-NOVOPROD-1257610

PATIENT
  Sex: Female

DRUGS (4)
  1. TRESIBA [Suspect]
     Active Substance: INSULIN DEGLUDEC
     Indication: Type 2 diabetes mellitus
     Dosage: 18 IU, QD
     Route: 058
  2. NOVOLOG [Suspect]
     Active Substance: INSULIN ASPART
     Dosage: 18 UNITS PER DAY (3 TIMES BEFORE MEALS)
     Route: 058
     Dates: start: 2023
  3. NOVOLOG [Suspect]
     Active Substance: INSULIN ASPART
     Dosage: 18 UNITS PER DAY (3 TIMES BEFORE MEALS)
     Route: 058
     Dates: start: 2023
  4. NOVOLOG [Suspect]
     Active Substance: INSULIN ASPART
     Indication: Type 2 diabetes mellitus
     Dosage: 18 UNITS PER DAY (3 TIMES BEFORE MEALS)
     Route: 058
     Dates: start: 2023

REACTIONS (2)
  - Knee operation [Recovering/Resolving]
  - Memory impairment [Unknown]
